FAERS Safety Report 8142170-8 (Version None)
Quarter: 2012Q1

REPORT INFORMATION
  Report Type: 
  Country: None (occurrence: None)
  Receive Date: 20120216
  Receipt Date: 20120206
  Transmission Date: 20120608
  Serious: Yes (Other)
  Sender: FDA-Public Use
  Company Number: ES-JNJFOC-20120107404

PATIENT
  Sex: Female

DRUGS (2)
  1. DRETINELLE [Suspect]
     Indication: PRODUCT USED FOR UNKNOWN INDICATION
     Route: 065
     Dates: start: 20110112
  2. ORTHO EVRA [Suspect]
     Indication: PRODUCT USED FOR UNKNOWN INDICATION
     Route: 062
     Dates: end: 20110112

REACTIONS (4)
  - BREAST CYST [None]
  - FIBROADENOMA OF BREAST [None]
  - APPLICATION SITE REACTION [None]
  - MIGRAINE [None]
